FAERS Safety Report 5064668-1 (Version None)
Quarter: 2006Q3

REPORT INFORMATION
  Report Type: 
  Country: None (occurrence: None)
  Receive Date: 20060728
  Receipt Date: 20060404
  Transmission Date: 20061208
  Serious: Yes (Death)
  Sender: FDA-Public Use
  Company Number: US-GLAXOSMITHKLINE-A0600150A

PATIENT
  Age: 24 Year
  Sex: Male
  Weight: 75 kg

DRUGS (3)
  1. PAXIL CR [Suspect]
     Indication: DRUG USE FOR UNKNOWN INDICATION
     Dosage: 25MG UNKNOWN
     Route: 048
     Dates: start: 20040406, end: 20040401
  2. LORAZEPAM [Concomitant]
     Dates: start: 20040101
  3. ZYPREXA [Concomitant]
     Dates: start: 20040101

REACTIONS (11)
  - ABNORMAL BEHAVIOUR [None]
  - ANXIETY [None]
  - COMPLETED SUICIDE [None]
  - DISTURBANCE IN ATTENTION [None]
  - FEELING HOT [None]
  - GUN SHOT WOUND [None]
  - HEAD INJURY [None]
  - INTENTIONAL SELF-INJURY [None]
  - LETHARGY [None]
  - MASKED FACIES [None]
  - TREMOR [None]
